FAERS Safety Report 5471467-5 (Version None)
Quarter: 2007Q3

REPORT INFORMATION
  Report Type: 
  Country: None (occurrence: None)
  Receive Date: 20070928
  Receipt Date: 20061106
  Transmission Date: 20080115
  Serious: No
  Sender: FDA-Public Use
  Company Number: US-BRISTOL-MYERS SQUIBB COMPANY-13567136

PATIENT
  Age: 77 Year
  Sex: Male

DRUGS (6)
  1. DEFINITY [Suspect]
     Indication: STRESS ECHOCARDIOGRAM
     Dosage: 1/2 VIAL
     Route: 042
     Dates: start: 20061103, end: 20061103
  2. AVALIDE [Concomitant]
  3. METOPROLOL SUCCINATE [Concomitant]
  4. AMIODARONE HCL [Concomitant]
  5. SYNTHROID [Concomitant]
  6. PREDNISONE [Concomitant]

REACTIONS (2)
  - BACK PAIN [None]
  - MUSCULAR WEAKNESS [None]
